FAERS Safety Report 20875492 (Version 1)
Quarter: 2022Q2

REPORT INFORMATION
  Report Type: Spontaneous
  Country: US (occurrence: US)
  Receive Date: 20220526
  Receipt Date: 20220526
  Transmission Date: 20220721
  Serious: No
  Sender: FDA-Public Use
  Company Number: US-GLAXOSMITHKLINE-US2022AMR081854

PATIENT

DRUGS (1)
  1. BLENREP [Suspect]
     Active Substance: BELANTAMAB MAFODOTIN-BLMF
     Indication: Product used for unknown indication
     Dosage: 1.5 MG, Z (Q3 WEEKS)

REACTIONS (6)
  - Vision blurred [Unknown]
  - Keratitis [Unknown]
  - Condition aggravated [Unknown]
  - Visual acuity reduced [Unknown]
  - Corneal disorder [Unknown]
  - Incorrect dose administered [Unknown]
